FAERS Safety Report 7315523-5 (Version None)
Quarter: 2011Q1

REPORT INFORMATION
  Report Type: 
  Country: None (occurrence: None)
  Receive Date: 20110119
  Receipt Date: 20100802
  Transmission Date: 20110831
  Serious: Yes (Hospitalization)
  Sender: FDA-Public Use
  Company Number: A-NJ2010-37789

PATIENT
  Age: 53 Year
  Sex: Female

DRUGS (1)
  1. TRACLEER [Suspect]
     Indication: PULMONARY ARTERIAL HYPERTENSION
     Dosage: 125 MG, BID, ORAL
     Route: 048
     Dates: start: 20100201, end: 20100615

REACTIONS (4)
  - HAEMOGLOBIN DECREASED [None]
  - ANAEMIA [None]
  - TRANSFUSION [None]
  - DYSPNOEA [None]
